FAERS Safety Report 4898966-9 (Version None)
Quarter: 2006Q1

REPORT INFORMATION
  Report Type: 
  Country: None (occurrence: None)
  Receive Date: 20060127
  Receipt Date: 20060112
  Transmission Date: 20060701
  Serious: Yes (Other)
  Sender: FDA-Public Use
  Company Number: US200601001804

PATIENT
  Age: 7 Year
  Sex: Male

DRUGS (3)
  1. STRATTERA [Suspect]
     Dosage: SEE IMAGE
     Dates: start: 20050913, end: 20050917
  2. STRATTERA [Suspect]
     Dosage: SEE IMAGE
     Dates: start: 20050917, end: 20051013
  3. RISPERDAL [Concomitant]

REACTIONS (1)
  - CONVULSION [None]
